FAERS Safety Report 12231229 (Version 1)
Quarter: 2016Q2

REPORT INFORMATION
  Report Type: Report from Study
  Country: JP (occurrence: JP)
  Receive Date: 20160401
  Receipt Date: 20160401
  Transmission Date: 20160815
  Serious: Yes (Hospitalization)
  Sender: FDA-Public Use
  Company Number: JP-ACTELION-A-CH2016-133694

PATIENT
  Age: 81 Year
  Sex: Male

DRUGS (8)
  1. TRACLEER [Suspect]
     Active Substance: BOSENTAN
     Indication: SCLERODERMA ASSOCIATED DIGITAL ULCER
     Dosage: 125 MG, OD
     Route: 048
     Dates: start: 20150904
  2. LAFUTIDINE [Concomitant]
     Active Substance: LAFUTIDINE
  3. PREDNISOLONE. [Concomitant]
     Active Substance: PREDNISOLONE
  4. CILOSTAZOL. [Concomitant]
     Active Substance: CILOSTAZOL
  5. AMLODIPINE BESILATE [Concomitant]
     Active Substance: AMLODIPINE BESYLATE
  6. BERAPROST SODIUM [Concomitant]
     Active Substance: BERAPROST SODIUM
  7. BETAMETHASONE W/CHLORPHENAMINE [Concomitant]
  8. RABEPRAZOLE [Concomitant]
     Active Substance: RABEPRAZOLE

REACTIONS (9)
  - Large intestine polyp [Recovering/Resolving]
  - Cataract [Recovering/Resolving]
  - Blood alkaline phosphatase increased [Recovered/Resolved]
  - Hepatic enzyme increased [Recovered/Resolved]
  - Anaemia [Recovered/Resolved]
  - Polypectomy [Unknown]
  - Gamma-glutamyltransferase increased [Recovered/Resolved]
  - Haemoglobin decreased [Recovered/Resolved]
  - Cataract operation [Unknown]

NARRATIVE: CASE EVENT DATE: 20150904
